FAERS Safety Report 4556018-1 (Version None)
Quarter: 2005Q1

REPORT INFORMATION
  Report Type: 
  Country: None (occurrence: None)
  Receive Date: 20050118
  Receipt Date: 20041124
  Transmission Date: 20050727
  Serious: No
  Sender: FDA-Public Use
  Company Number: A03200402889

PATIENT
  Age: 74 Year
  Sex: Male
  Weight: 47.6277 kg

DRUGS (1)
  1. UROXATRAL [Suspect]
     Indication: URINE FLOW DECREASED
     Dosage: ONE HALF TABLET (5MG) EVERY MORNING - ORAL
     Route: 048
     Dates: start: 20040801

REACTIONS (2)
  - HAEMATOCHEZIA [None]
  - INTESTINAL HYPOMOTILITY [None]
